FAERS Safety Report 9387453 (Version 2)
Quarter: 2013Q4

REPORT INFORMATION
  Report Type: Spontaneous
  Country: GB (occurrence: None)
  Receive Date: 20130625
  Receipt Date: 20131030
  Transmission Date: 20140711
  Serious: Yes (Other)
  Sender: FDA-Public Use
  Company Number: 2013036570

PATIENT
  Age: 23 Year
  Sex: Female

DRUGS (1)
  1. FIBRINOGEN [Suspect]
     Indication: PLATELET COUNT DECREASED
     Dosage: TOTAL

REACTIONS (12)
  - Postpartum haemorrhage [None]
  - Drug ineffective for unapproved indication [None]
  - Maternal exposure during pregnancy [None]
  - Hypertension [None]
  - Blood lactic acid increased [None]
  - Muscle twitching [None]
  - Clonus [None]
  - Hyperreflexia [None]
  - Metabolic acidosis [None]
  - Caesarean section [None]
  - Premature delivery [None]
  - Platelet count decreased [None]
